FAERS Safety Report 9454558 (Version 1)
Quarter: 2013Q3

REPORT INFORMATION
  Report Type: Spontaneous
  Country: US (occurrence: US)
  Receive Date: 20130812
  Receipt Date: 20130812
  Transmission Date: 20140515
  Serious: Yes (Hospitalization, Other)
  Sender: FDA-Public Use
  Company Number: ALCN2013US002288

PATIENT
  Sex: 0

DRUGS (2)
  1. TRAVATAN Z [Suspect]
     Indication: GLAUCOMA
     Dosage: 1 GTT, QD
     Route: 047
     Dates: start: 201211
  2. TRAVATAN Z [Suspect]
     Dosage: 1 GTT, QOD
     Route: 047
     Dates: start: 2013

REACTIONS (10)
  - Temporal arteritis [Recovering/Resolving]
  - Optic nerve disorder [Recovering/Resolving]
  - Intraocular pressure increased [Unknown]
  - Dizziness [Unknown]
  - Balance disorder [Unknown]
  - Hallucination [Unknown]
  - Vision blurred [Unknown]
  - Eye irritation [Not Recovered/Not Resolved]
  - Conjunctival hyperaemia [Unknown]
  - Visual acuity reduced [Not Recovered/Not Resolved]
